FAERS Safety Report 5806345-2 (Version None)
Quarter: 2008Q3

REPORT INFORMATION
  Report Type: 
  Country: None (occurrence: None)
  Receive Date: 20080710
  Receipt Date: 20080701
  Transmission Date: 20090109
  Serious: Yes (Hospitalization)
  Sender: FDA-Public Use
  Company Number: JP-ASTRAZENECA-2008AP04997

PATIENT
  Age: 72 Year
  Sex: Female

DRUGS (2)
  1. DIPRIVAN [Suspect]
     Indication: SEDATION
     Dosage: DOSE UNKNOWN
     Route: 042
     Dates: start: 20080618, end: 20080624
  2. INOVAN [Concomitant]
     Dosage: DOSE UNKNOWN
     Route: 042

REACTIONS (1)
  - DELAYED RECOVERY FROM ANAESTHESIA [None]
